FAERS Safety Report 19709490 (Version 3)
Quarter: 2021Q3

REPORT INFORMATION
  Report Type: Spontaneous
  Country: US (occurrence: US)
  Receive Date: 20210817
  Receipt Date: 20210930
  Transmission Date: 20211014
  Serious: No
  Sender: FDA-Public Use
  Company Number: US-ASTRAZENECA-2021A661059

PATIENT
  Age: 30908 Day
  Sex: Male
  Weight: 68.9 kg

DRUGS (4)
  1. OXYBUTIN [Concomitant]
     Active Substance: OXYBUTYNIN
  2. AMOXICILLIN. [Concomitant]
     Active Substance: AMOXICILLIN
  3. BREZTRI AEROSPHERE [Suspect]
     Active Substance: BUDESONIDE\FORMOTEROL\GLYCOPYRRONIUM
     Indication: PNEUMONIA
     Dosage: ONE PUFF TWICE PER DAY
     Route: 055
     Dates: start: 20210823
  4. BREZTRI AEROSPHERE [Suspect]
     Active Substance: BUDESONIDE\FORMOTEROL\GLYCOPYRRONIUM
     Indication: PNEUMONIA
     Dosage: 2 PUFFS TWICE A DAY
     Route: 055
     Dates: start: 202107, end: 20210816

REACTIONS (9)
  - Device ineffective [Unknown]
  - Dyspnoea [Recovering/Resolving]
  - Lip swelling [Recovered/Resolved]
  - Hypersensitivity [Unknown]
  - Wheezing [Recovering/Resolving]
  - Pulmonary congestion [Unknown]
  - Cough [Unknown]
  - Pneumonia [Unknown]
  - Sputum discoloured [Unknown]

NARRATIVE: CASE EVENT DATE: 20210802
